FAERS Safety Report 6137443-4 (Version None)
Quarter: 2009Q1

REPORT INFORMATION
  Report Type: 
  Country: None (occurrence: None)
  Receive Date: 20090330
  Receipt Date: 20090325
  Transmission Date: 20090719
  Serious: Yes (Death)
  Sender: FDA-Public Use
  Company Number: FR-ELI_LILLY_AND_COMPANY-FR200903006962

PATIENT
  Sex: Female
  Weight: 67 kg

DRUGS (3)
  1. DROTRECOGIN ALFA (ACTIVATED) [Suspect]
     Indication: SEPSIS
     Dosage: UNK, UNKNOWN
     Route: 042
     Dates: start: 20071231, end: 20080104
  2. HYPNOVEL [Concomitant]
     Indication: SEDATION
     Dates: start: 20071231
  3. SUFENTA PRESERVATIVE FREE [Concomitant]
     Indication: SEDATION
     Dates: start: 20071231

REACTIONS (1)
  - CEREBROVASCULAR ACCIDENT [None]
